FAERS Safety Report 23406035 (Version 1)
Quarter: 2024Q1

REPORT INFORMATION
  Report Type: Spontaneous
  Country: US (occurrence: None)
  Receive Date: 20240114
  Receipt Date: 20240114
  Transmission Date: 20240410
  Serious: Yes (Hospitalization)
  Sender: FDA-Public Use
  Company Number: None

PATIENT
  Age: 59 Year
  Sex: Male
  Weight: 88.65 kg

DRUGS (8)
  1. ALEVE [Suspect]
     Active Substance: NAPROXEN SODIUM
     Indication: Myalgia
     Dosage: OTHER QUANTITY : 1 CAPSULE(S);?FREQUENCY : EVERY 12 HOURS;?
     Route: 048
     Dates: start: 20231217, end: 20231222
  2. LORAZEPAM [Concomitant]
     Active Substance: LORAZEPAM
  3. TESTOSTERONE [Concomitant]
     Active Substance: TESTOSTERONE
  4. TADALAFIL [Concomitant]
     Active Substance: TADALAFIL
  5. VITAMINS [Concomitant]
     Active Substance: VITAMINS
  6. VITAMIN D3 [Concomitant]
     Active Substance: CHOLECALCIFEROL
  7. Pinebark Extract [Concomitant]
  8. L-Arginine tablets [Concomitant]

REACTIONS (3)
  - Middle insomnia [None]
  - Abdominal pain [None]
  - Small intestinal obstruction [None]

NARRATIVE: CASE EVENT DATE: 20231222
